FAERS Safety Report 13913619 (Version 1)
Quarter: 2017Q3

REPORT INFORMATION
  Report Type: Spontaneous
  Country: US (occurrence: US)
  Receive Date: 20170828
  Receipt Date: 20170828
  Transmission Date: 20171127
  Serious: No
  Sender: FDA-Public Use
  Company Number: US-ROCHE-1138006

PATIENT
  Age: 30 Year
  Sex: Female
  Weight: 125 kg

DRUGS (3)
  1. NUTROPIN AQ [Suspect]
     Active Substance: SOMATROPIN
     Route: 058
     Dates: start: 200001
  2. NUTROPIN AQ [Suspect]
     Active Substance: SOMATROPIN
     Indication: DWARFISM
     Dosage: SIG: 0.33 MG
     Route: 058
     Dates: start: 20000103
  3. THYROID [Concomitant]
     Active Substance: LEVOTHYROXINE\LIOTHYRONINE
     Route: 065

REACTIONS (4)
  - Dysstasia [Unknown]
  - Rash erythematous [Unknown]
  - Muscular weakness [Unknown]
  - Pruritus [Unknown]

NARRATIVE: CASE EVENT DATE: 20000103
